FAERS Safety Report 4971682-0 (Version None)
Quarter: 2006Q2

REPORT INFORMATION
  Report Type: 
  Country: None (occurrence: None)
  Receive Date: 20060407
  Receipt Date: 20060327
  Transmission Date: 20061013
  Serious: Yes (Disabling, Other)
  Sender: FDA-Public Use
  Company Number: 2005171364

PATIENT
  Age: 66 Year
  Sex: Male

DRUGS (11)
  1. MAXAQUIN [Suspect]
     Indication: PROSTATIC DISORDER
     Dosage: 400 MG (1 IN 1 D)
     Dates: start: 19950329
  2. CIPROFLOXACIN [Suspect]
     Indication: ILL-DEFINED DISORDER
     Dosage: 1000 MG (500 MG, 2 IN 1 D)
     Dates: start: 19960502
  3. LEVAQUIN [Suspect]
     Indication: ILL-DEFINED DISORDER
     Dates: start: 20001228
  4. TEQUIN [Suspect]
     Indication: ILL-DEFINED DISORDER
     Dates: start: 20030308
  5. AVELOX [Suspect]
     Indication: ILL-DEFINED DISORDER
  6. BUSPAR [Concomitant]
  7. RELAFEN [Concomitant]
  8. SEPTRA [Concomitant]
  9. SYMMETREL [Concomitant]
  10. TESTOSTERONE [Concomitant]
  11. PEPCID [Concomitant]

REACTIONS (24)
  - AMNESIA [None]
  - ARRHYTHMIA [None]
  - ARTHRALGIA [None]
  - BACK PAIN [None]
  - BLOOD CREATININE INCREASED [None]
  - DEAFNESS [None]
  - DRUG EFFECT DECREASED [None]
  - ERECTILE DYSFUNCTION [None]
  - EYE PAIN [None]
  - FEELING ABNORMAL [None]
  - HEPATOCELLULAR DAMAGE [None]
  - IMPAIRED WORK ABILITY [None]
  - INSOMNIA [None]
  - JOINT INJURY [None]
  - MUSCLE SPASMS [None]
  - OCULAR HYPERAEMIA [None]
  - PAIN [None]
  - PAIN IN JAW [None]
  - RENAL DISORDER [None]
  - ROTATOR CUFF SYNDROME [None]
  - SPERM COUNT ZERO [None]
  - TENDON RUPTURE [None]
  - TINNITUS [None]
  - VISUAL ACUITY REDUCED [None]
